FAERS Safety Report 18105567 (Version 3)
Quarter: 2020Q4

REPORT INFORMATION
  Report Type: Report from Study
  Country: CO (occurrence: CO)
  Receive Date: 20200803
  Receipt Date: 20201015
  Transmission Date: 20210113
  Serious: Yes (Hospitalization)
  Sender: FDA-Public Use
  Company Number: NVSC2020CO162393

PATIENT
  Age: 46 Year
  Sex: Female
  Weight: 76 kg

DRUGS (7)
  1. COSENTYX [Suspect]
     Active Substance: SECUKINUMAB
     Dosage: 150 MG, QMO
     Route: 058
     Dates: start: 20200615
  2. METHOTREXATE. [Concomitant]
     Active Substance: METHOTREXATE
     Indication: PSORIATIC ARTHROPATHY
     Dosage: 2.5 MG (6 TABLETS ON SUNDAY AND MONDAY)
     Route: 048
     Dates: start: 2017
  3. COSENTYX [Suspect]
     Active Substance: SECUKINUMAB
     Indication: PSORIATIC ARTHROPATHY
     Dosage: 150 MG, QW (EVERY 8 DAYS FOR 5 WEEKS)
     Route: 058
     Dates: start: 20200520
  4. COSENTYX [Suspect]
     Active Substance: SECUKINUMAB
     Dosage: 150 MG, QMO
     Route: 058
  5. PREDNISOLONE. [Concomitant]
     Active Substance: PREDNISOLONE
     Indication: PSORIATIC ARTHROPATHY
     Dosage: 5 MG, QD (START DATE: 6 MONTHS AGO)
     Route: 048
  6. LEFLUNOMIDE. [Concomitant]
     Active Substance: LEFLUNOMIDE
     Indication: PSORIATIC ARTHROPATHY
     Dosage: 20 MG, QD (STARTED 1 YEAR AGO)
     Route: 048
  7. CALCIUM [Concomitant]
     Active Substance: CALCIUM
     Indication: PSORIATIC ARTHROPATHY
     Dosage: 600 MG, QD (START DATE- 2 YEARS AGO)
     Route: 048

REACTIONS (9)
  - Blood urine present [Recovered/Resolved]
  - Bacterial infection [Not Recovered/Not Resolved]
  - Productive cough [Recovered/Resolved]
  - Urinary tract infection [Unknown]
  - Abdominal pain [Recovering/Resolving]
  - Oropharyngeal pain [Unknown]
  - Secretion discharge [Recovered/Resolved]
  - Dysuria [Not Recovered/Not Resolved]
  - Back pain [Not Recovered/Not Resolved]

NARRATIVE: CASE EVENT DATE: 20200604
